FAERS Safety Report 11944553 (Version 6)
Quarter: 2021Q1

REPORT INFORMATION
  Report Type: Spontaneous
  Country: JP (occurrence: JP)
  Receive Date: 20160125
  Receipt Date: 20210128
  Transmission Date: 20210419
  Serious: Yes (Death, Hospitalization, Other)
  Sender: FDA-Public Use
  Company Number: PHJP2016JP001510

PATIENT
  Age: 61 Year
  Sex: Male

DRUGS (1)
  1. TASIGNA [Suspect]
     Active Substance: NILOTINIB
     Indication: CHRONIC MYELOID LEUKAEMIA
     Dosage: 800 MG, UNK
     Route: 048
     Dates: end: 20150512

REACTIONS (8)
  - Metastases to lung [Unknown]
  - Lung adenocarcinoma [Fatal]
  - Second primary malignancy [Fatal]
  - Back pain [Unknown]
  - Lung adenocarcinoma recurrent [Fatal]
  - Chest pain [Unknown]
  - Metastases to central nervous system [Unknown]
  - Dyspnoea exertional [Unknown]

NARRATIVE: CASE EVENT DATE: 20150512
